FAERS Safety Report 4679944-1 (Version None)
Quarter: 2005Q2

REPORT INFORMATION
  Report Type: 
  Country: None (occurrence: None)
  Receive Date: 20050531
  Receipt Date: 20050519
  Transmission Date: 20051028
  Serious: Yes (Hospitalization)
  Sender: FDA-Public Use
  Company Number: B0381807A

PATIENT
  Age: 56 Year
  Sex: Female

DRUGS (3)
  1. IMITREX [Suspect]
     Indication: MIGRAINE
     Dosage: 50 MG/ORAL
     Route: 048
     Dates: start: 19970101, end: 20050415
  2. ENALAPRIL MALEATE [Concomitant]
  3. BENDOFLUAZIDE [Concomitant]

REACTIONS (1)
  - CORONARY ARTERY DISSECTION [None]
